FAERS Safety Report 9674721 (Version 1)
Quarter: 2013Q4

REPORT INFORMATION
  Report Type: Spontaneous
  Country: US (occurrence: None)
  Receive Date: 20131106
  Receipt Date: 20131106
  Transmission Date: 20140711
  Serious: Yes (Disabling)
  Sender: FDA-Public Use
  Company Number: None

PATIENT
  Age: 48 Year
  Sex: Female
  Weight: 77.11 kg

DRUGS (1)
  1. ALBUTEROL SULFATE [Suspect]
     Indication: BRONCHITIS
     Dosage: USE IN NEBULIZER AS NEEDED  FOUR TIMES DAILY INHALATION
     Route: 055
     Dates: start: 20131015, end: 20131031

REACTIONS (1)
  - Poor quality drug administered [None]
